FAERS Safety Report 6373651-5 (Version None)
Quarter: 2009Q3

REPORT INFORMATION
  Report Type: 
  Country: None (occurrence: None)
  Receive Date: 20090924
  Receipt Date: 20090914
  Transmission Date: 20100115
  Serious: Yes (Death, Hospitalization, Other)
  Sender: FDA-Public Use
  Company Number: GB-PFIZER INC-2009268623

PATIENT
  Age: 61 Year

DRUGS (2)
  1. METHYLPREDNISOLONE AND METHYLPREDNISOLONE ACETATE AND METHYLPREDNISOLO [Suspect]
     Indication: TRANSPLANT REJECTION
     Dosage: 1 GM AND 500 MG
     Route: 042
     Dates: start: 20070901
  2. METHYLPREDNISOLONE AND METHYLPREDNISOLONE ACETATE AND METHYLPREDNISOLO [Suspect]
     Indication: LUNG TRANSPLANT

REACTIONS (2)
  - ARTERIAL DISORDER [None]
  - INTRA-ABDOMINAL HAEMORRHAGE [None]
